FAERS Safety Report 6558041-4 (Version None)
Quarter: 2010Q1

REPORT INFORMATION
  Report Type: 
  Country: None (occurrence: None)
  Receive Date: 20100126
  Receipt Date: 20100111
  Transmission Date: 20100710
  Serious: Yes (Hospitalization)
  Sender: FDA-Public Use
  Company Number: 002986

PATIENT
  Sex: Female

DRUGS (1)
  1. CIMZIA [Suspect]
     Dosage: 9400 MG/MONTHLY SUBCUTANEOUS)
     Route: 058
     Dates: start: 20090611

REACTIONS (2)
  - PYREXIA [None]
  - VOMITING [None]
